FAERS Safety Report 25757887 (Version 2)
Quarter: 2025Q3

REPORT INFORMATION
  Report Type: Report from Study
  Country: CL (occurrence: CL)
  Receive Date: 20250903
  Receipt Date: 20250930
  Transmission Date: 20251021
  Serious: Yes (Other)
  Sender: NOVARTIS
  Company Number: CL-002147023-NVSC2024CL232772

PATIENT
  Age: 33 Year
  Sex: Female

DRUGS (7)
  1. KESIMPTA [Suspect]
     Active Substance: OFATUMUMAB
     Indication: Relapsing-remitting multiple sclerosis
     Route: 058
  2. KESIMPTA [Suspect]
     Active Substance: OFATUMUMAB
     Dosage: 20 MG, QMO
     Route: 058
     Dates: start: 20241024
  3. KESIMPTA [Suspect]
     Active Substance: OFATUMUMAB
     Route: 065
     Dates: start: 20241121
  4. KESIMPTA [Suspect]
     Active Substance: OFATUMUMAB
     Route: 065
     Dates: start: 20241219
  5. KESIMPTA [Suspect]
     Active Substance: OFATUMUMAB
     Dosage: 20 MG, QMO
     Route: 058
  6. KESIMPTA [Suspect]
     Active Substance: OFATUMUMAB
     Route: 065
     Dates: start: 20250821
  7. KESIMPTA [Suspect]
     Active Substance: OFATUMUMAB
     Route: 065
     Dates: start: 20250921

REACTIONS (18)
  - Skin lesion [Unknown]
  - Muscular weakness [Unknown]
  - General physical health deterioration [Unknown]
  - Sensory loss [Unknown]
  - Depressed mood [Unknown]
  - Muscle fatigue [Unknown]
  - Condition aggravated [Unknown]
  - Dizziness [Unknown]
  - Fatigue [Unknown]
  - Tachycardia [Unknown]
  - Asthenia [Recovered/Resolved]
  - Nasopharyngitis [Not Recovered/Not Resolved]
  - Cough [Unknown]
  - Aphonia [Unknown]
  - Asthenia [Not Recovered/Not Resolved]
  - Hypersensitivity [Unknown]
  - Throat clearing [Unknown]
  - Off label use [Unknown]

NARRATIVE: CASE EVENT DATE: 20241222
